FAERS Safety Report 9854217 (Version 2)
Quarter: 2014Q1

REPORT INFORMATION
  Report Type: Spontaneous
  Country: IT (occurrence: IT)
  Receive Date: 20140130
  Receipt Date: 20140326
  Transmission Date: 20141002
  Serious: Yes (Hospitalization)
  Sender: FDA-Public Use
  Company Number: IT-ROCHE-1340181

PATIENT
  Age: 70 Year
  Sex: Male
  Weight: 70 kg

DRUGS (5)
  1. MABTHERA [Suspect]
     Indication: NON-HODGKIN^S LYMPHOMA
     Route: 042
     Dates: start: 20131008, end: 20131008
  2. LEVACT (ITALY) [Concomitant]
     Indication: NON-HODGKIN^S LYMPHOMA
     Route: 042
     Dates: start: 20131008, end: 20140102
  3. TACHIPIRINA [Concomitant]
     Indication: PREMEDICATION
     Route: 048
     Dates: start: 20131008, end: 20131008
  4. TRIMETON (ITALY) [Concomitant]
     Indication: PREMEDICATION
     Route: 030
     Dates: start: 20131008, end: 20131008
  5. URBASON [Concomitant]
     Indication: PREMEDICATION
     Route: 042
     Dates: start: 20131008, end: 20131008

REACTIONS (2)
  - Interstitial lung disease [Recovered/Resolved]
  - Respiratory distress [Recovered/Resolved]
